FAERS Safety Report 8542371-0 (Version None)
Quarter: 2012Q3

REPORT INFORMATION
  Report Type: 
  Country: None (occurrence: None)
  Receive Date: 20120726
  Receipt Date: 20111012
  Transmission Date: 20120928
  Serious: Yes (Other)
  Sender: FDA-Public Use
  Company Number: US-ASTRAZENECA-2011SE61663

PATIENT
  Age: 44 Year
  Sex: Female

DRUGS (1)
  1. SEROQUEL [Suspect]
     Indication: DEPRESSION
     Route: 048

REACTIONS (6)
  - PSYCHOTIC DISORDER [None]
  - MENTAL IMPAIRMENT [None]
  - PARANOIA [None]
  - SUICIDAL IDEATION [None]
  - HALLUCINATION, AUDITORY [None]
  - ADVERSE DRUG REACTION [None]
